FAERS Safety Report 15546888 (Version 2)
Quarter: 2019Q1

REPORT INFORMATION
  Report Type: Other
  Country: GB (occurrence: GB)
  Receive Date: 20181024
  Receipt Date: 20190107
  Transmission Date: 20190417
  Serious: Yes (Other)
  Sender: FDA-Public Use
  Company Number: GB-GLENMARK PHARMACEUTICALS-2018GMK037907

PATIENT

DRUGS (2)
  1. LAMOTRIGINE. [Suspect]
     Active Substance: LAMOTRIGINE
     Indication: NEURALGIA
     Dosage: 250 MG, QD (100 MG IN MORNING, 150 MG IN AFTERNOON)
     Route: 048
     Dates: start: 2018
  2. LAMOTRIGINE. [Suspect]
     Active Substance: LAMOTRIGINE
     Dosage: 200 MG, QD (100 MG IN MORNING, 100 MG IN AFTERNOON)
     Route: 048
     Dates: start: 20180419

REACTIONS (3)
  - Balance disorder [Recovered/Resolved with Sequelae]
  - Alopecia [Not Recovered/Not Resolved]
  - Dizziness [Recovered/Resolved with Sequelae]

NARRATIVE: CASE EVENT DATE: 20180730
